FAERS Safety Report 5239057-7 (Version None)
Quarter: 2007Q1

REPORT INFORMATION
  Report Type: 
  Country: None (occurrence: None)
  Receive Date: 20061208
  Receipt Date: 20050628
  Transmission Date: 20070707
  Serious: Yes (Other)
  Sender: FDA-Public Use
  Company Number: 2005UW09757

PATIENT
  Age: 65 Year
  Sex: Female
  Weight: 89.193 kg

DRUGS (3)
  1. CRESTOR [Suspect]
     Dosage: 10 MG
  2. DIOVAN [Concomitant]
  3. ATENOLOL [Concomitant]

REACTIONS (1)
  - WEIGHT INCREASED [None]
